FAERS Safety Report 5968968-X (Version None)
Quarter: 2008Q4

REPORT INFORMATION
  Report Type: 
  Country: None (occurrence: None)
  Receive Date: 20081125
  Receipt Date: 20081125
  Transmission Date: 20090506
  Serious: Yes (Hospitalization)
  Sender: FDA-Public Use
  Company Number: None

PATIENT
  Age: 42 Year
  Sex: Female
  Weight: 71.8 kg

DRUGS (5)
  1. DIPHENHYDRAMINE HCL [Suspect]
     Indication: PRURITUS
     Dosage: 50MG Q4HRS PRN IV
     Route: 042
     Dates: start: 20081118, end: 20081121
  2. ASPIRIN [Concomitant]
  3. METRONIDAZOLE [Concomitant]
  4. PANTOPRAZOLE SODIUM [Concomitant]
  5. APAP TAB [Concomitant]

REACTIONS (2)
  - DYSTONIA [None]
  - MUSCLE RIGIDITY [None]
